FAERS Safety Report 16786582 (Version 1)
Quarter: 2019Q3

REPORT INFORMATION
  Report Type: Spontaneous
  Country: CN (occurrence: CN)
  Receive Date: 20190909
  Receipt Date: 20190909
  Transmission Date: 20191005
  Serious: Yes (Other)
  Sender: FDA-Public Use
  Company Number: CN-BAXTER-2019BAX017487

PATIENT
  Age: 3 Year
  Sex: Male
  Weight: 13.3 kg

DRUGS (6)
  1. 5% GLUCOSE AND 0.9% SODIUM CHLORIDE INJECTION [Suspect]
     Active Substance: DEXTROSE\SODIUM CHLORIDE
     Dosage: ENDOXAN 0.6G + (4:1) GLUCOSE AND SODIUM CHLORIDE INJECTION 250ML
     Route: 041
     Dates: start: 20190814, end: 20190814
  2. CYTARABINE. [Suspect]
     Active Substance: CYTARABINE
     Indication: ACUTE LYMPHOCYTIC LEUKAEMIA
     Dosage: CYTARABINE 0.6G + (4:1) GLUCOSE AND SODIUM CHLORIDE INJECTION 100ML
     Route: 041
     Dates: start: 20190814, end: 20190817
  3. MERCAPTOPURINE. [Suspect]
     Active Substance: MERCAPTOPURINE
     Indication: ACUTE LYMPHOCYTIC LEUKAEMIA
     Dosage: TABLET
     Route: 048
     Dates: start: 20190814, end: 20190819
  4. OUBEI [Suspect]
     Active Substance: ONDANSETRON HYDROCHLORIDE
     Indication: ACUTE LYMPHOCYTIC LEUKAEMIA
     Route: 042
     Dates: start: 20190814, end: 20190817
  5. ENDOXAN [Suspect]
     Active Substance: CYCLOPHOSPHAMIDE
     Indication: ACUTE LYMPHOCYTIC LEUKAEMIA
     Dosage: ENDOXAN 0.6G + (4:1) GLUCOSE AND SODIUM CHLORIDE INJECTION 250ML
     Route: 041
     Dates: start: 20190814, end: 20190814
  6. 5% GLUCOSE AND 0.9% SODIUM CHLORIDE INJECTION [Suspect]
     Active Substance: DEXTROSE\SODIUM CHLORIDE
     Indication: MEDICATION DILUTION
     Dosage: CYTARABINE 0.6G + (4:1) GLUCOSE AND SODIUM CHLORIDE INJECTION 100ML
     Route: 041
     Dates: start: 20190814, end: 20190817

REACTIONS (1)
  - Bone marrow failure [Recovering/Resolving]

NARRATIVE: CASE EVENT DATE: 20190825
